FAERS Safety Report 4931150-9 (Version None)
Quarter: 2006Q1

REPORT INFORMATION
  Report Type: 
  Country: None (occurrence: None)
  Receive Date: 20060227
  Receipt Date: 20060221
  Transmission Date: 20060701
  Serious: Yes (Other)
  Sender: FDA-Public Use
  Company Number: 200610992BWH

PATIENT
  Age: 50 Year

DRUGS (1)
  1. AVELOX [Suspect]

REACTIONS (1)
  - HYPOGLYCAEMIA [None]
